FAERS Safety Report 12334739 (Version 3)
Quarter: 2016Q4

REPORT INFORMATION
  Report Type: Spontaneous
  Country: US (occurrence: US)
  Receive Date: 20160504
  Receipt Date: 20161207
  Transmission Date: 20170207
  Serious: No
  Sender: FDA-Public Use
  Company Number: US-PFIZER INC-2016235280

PATIENT
  Age: 42 Year
  Sex: Male
  Weight: 74.83 kg

DRUGS (2)
  1. ZITHROMAX [Suspect]
     Active Substance: AZITHROMYCIN DIHYDRATE
     Indication: CHLAMYDIAL INFECTION
     Dosage: 1500 MG, 2X/DAY
     Dates: start: 2009, end: 2009
  2. ZITHROMAX [Suspect]
     Active Substance: AZITHROMYCIN DIHYDRATE
     Indication: REITER^S SYNDROME

REACTIONS (5)
  - Rash macular [Unknown]
  - Product use issue [Unknown]
  - Lymphoedema [Recovered/Resolved]
  - Joint dislocation [Recovered/Resolved]
  - Skin disorder [Recovered/Resolved]

NARRATIVE: CASE EVENT DATE: 2010
